FAERS Safety Report 4654774-5 (Version None)
Quarter: 2005Q2

REPORT INFORMATION
  Report Type: 
  Country: None (occurrence: None)
  Receive Date: 20050506
  Receipt Date: 20050331
  Transmission Date: 20051028
  Serious: Yes (Other)
  Sender: FDA-Public Use
  Company Number: DE-ROCHE-400237

PATIENT
  Age: 74 Year
  Sex: Female
  Weight: 70 kg

DRUGS (2)
  1. BONDRONAT [Suspect]
     Indication: PLASMACYTOMA
     Route: 065
  2. ZOMETA [Suspect]
     Indication: PLASMACYTOMA
     Route: 065

REACTIONS (2)
  - OSTEOMYELITIS [None]
  - OSTEONECROSIS [None]
